FAERS Safety Report 6831166-1 (Version None)
Quarter: 2010Q3

REPORT INFORMATION
  Report Type: 
  Country: None (occurrence: None)
  Receive Date: 20100707
  Receipt Date: 20100624
  Transmission Date: 20110219
  Serious: Yes (Other)
  Sender: FDA-Public Use
  Company Number: 7009273

PATIENT
  Age: 39 Year
  Sex: Female

DRUGS (1)
  1. NOVANTRONE [Suspect]
     Indication: MULTIPLE SCLEROSIS
     Dates: start: 20060101

REACTIONS (4)
  - DYSARTHRIA [None]
  - MUSCULOSKELETAL DISORDER [None]
  - THYROID DISORDER [None]
  - WEIGHT INCREASED [None]
